FAERS Safety Report 24983203 (Version 1)
Quarter: 2025Q1

REPORT INFORMATION
  Report Type: Spontaneous
  Country: JP (occurrence: JP)
  Receive Date: 20250218
  Receipt Date: 20250218
  Transmission Date: 20250409
  Serious: Yes (Hospitalization)
  Sender: AMGEN
  Company Number: JP-DSJP-DS-2025-124708-

PATIENT
  Sex: Female

DRUGS (1)
  1. DENOSUMAB [Suspect]
     Active Substance: DENOSUMAB
     Indication: Osteoporosis
     Route: 065

REACTIONS (2)
  - Spinal compression fracture [Unknown]
  - Localised infection [Unknown]

NARRATIVE: CASE EVENT DATE: 20240101
